FAERS Safety Report 9820897 (Version 1)
Quarter: 2014Q1

REPORT INFORMATION
  Report Type: Spontaneous
  Country: US (occurrence: US)
  Receive Date: 20140116
  Receipt Date: 20140116
  Transmission Date: 20141002
  Serious: Yes (Other)
  Sender: FDA-Public Use
  Company Number: US-ENDO PHARMACEUTICALS INC.-OPCR20140017

PATIENT
  Sex: Male

DRUGS (1)
  1. OPANA ER 20MG [Suspect]
     Indication: PAIN
     Route: 048

REACTIONS (1)
  - Suicidal ideation [Not Recovered/Not Resolved]
